FAERS Safety Report 6266373-2 (Version None)
Quarter: 2009Q3

REPORT INFORMATION
  Report Type: 
  Country: None (occurrence: None)
  Receive Date: 20090709
  Receipt Date: 20090630
  Transmission Date: 20100115
  Serious: Yes (Hospitalization)
  Sender: FDA-Public Use
  Company Number: GXKR2009US07510

PATIENT
  Age: 41 Year
  Sex: Male

DRUGS (1)
  1. METHADONE (NGX) (METHADONE) TABLET [Suspect]
     Dosage: INTRAVENOUS
     Route: 042

REACTIONS (5)
  - CHILLS [None]
  - PLEURAL FIBROSIS [None]
  - PNEUMOTHORAX [None]
  - PULMONARY GRANULOMA [None]
  - PYREXIA [None]
